FAERS Safety Report 5218384-3 (Version None)
Quarter: 2007Q1

REPORT INFORMATION
  Report Type: 
  Country: None (occurrence: None)
  Receive Date: 20070124
  Receipt Date: 20070112
  Transmission Date: 20070707
  Serious: Yes (Other)
  Sender: FDA-Public Use
  Company Number: US-PFIZER INC-2007004404

PATIENT

DRUGS (2)
  1. DEPO-MEDROL [Suspect]
     Route: 037
  2. MARCAINE [Suspect]

REACTIONS (2)
  - DRUG ADMINISTRATION ERROR [None]
  - SENSORY LOSS [None]
